FAERS Safety Report 22320977 (Version 1)
Quarter: 2023Q2

REPORT INFORMATION
  Report Type: Other
  Country: TW (occurrence: TW)
  Receive Date: 20230515
  Receipt Date: 20230515
  Transmission Date: 20230722
  Serious: Yes (Other)
  Sender: FDA-Public Use
  Company Number: TW-DENTSPLY-2023SCDP000146

PATIENT
  Sex: Female

DRUGS (4)
  1. LIDOCAINE [Suspect]
     Active Substance: LIDOCAINE
     Indication: Torsade de pointes
     Dosage: 30 MCG/KG TOTAL LIDOCAINE BOLUS
     Route: 042
  2. LIDOCAINE [Suspect]
     Active Substance: LIDOCAINE
     Dosage: 30 MCG/KG PER 1 HOUR LIDOCAINE
     Route: 042
  3. PROPRANOLOL [Concomitant]
     Active Substance: PROPRANOLOL HYDROCHLORIDE
     Indication: Long QT syndrome
     Dosage: 2 MG/KG A DAY
  4. MEXILETINE [Concomitant]
     Active Substance: MEXILETINE
     Indication: Long QT syndrome
     Dosage: 12 MG/KG A DAY

REACTIONS (3)
  - Dyskinesia [Recovered/Resolved]
  - Ejection fraction decreased [Recovered/Resolved]
  - Somnolence [Recovered/Resolved]
